FAERS Safety Report 23320710 (Version 2)
Quarter: 2023Q4

REPORT INFORMATION
  Report Type: Spontaneous
  Country: ES (occurrence: None)
  Receive Date: 20231220
  Receipt Date: 20231221
  Transmission Date: 20240109
  Serious: Yes (Other)
  Sender: FDA-Public Use
  Company Number: 2023A283186

PATIENT
  Age: 72 Year
  Sex: Male
  Weight: 71 kg

DRUGS (17)
  1. CRESTOR [Suspect]
     Active Substance: ROSUVASTATIN CALCIUM
     Indication: Acute myocardial infarction
     Dosage: 20.0 MG OF
     Route: 048
     Dates: start: 20230511
  2. TICAGRELOR [Suspect]
     Active Substance: TICAGRELOR
     Indication: Acute myocardial infarction
     Dosage: 90 MILLIGRAM, EVERY 12 HRS
     Route: 048
     Dates: start: 20230511
  3. ASPIRIN [Suspect]
     Active Substance: ASPIRIN
     Indication: Acute myocardial infarction
     Dosage: 100.0 MG CO
     Route: 048
     Dates: start: 20230511
  4. LORAZEPAM [Concomitant]
     Active Substance: LORAZEPAM
     Indication: Insomnia
     Dosage: 2 MILLIGRAM, 1/DAY
     Route: 048
     Dates: start: 20200512
  5. TRAMADOL KERN PHARMA [Concomitant]
     Indication: Arthritis infective
     Dosage: 100.0 MG DECOCE
     Route: 048
     Dates: start: 20131209
  6. LATANOPROST\TIMOLOL MALEATE [Concomitant]
     Active Substance: LATANOPROST\TIMOLOL MALEATE
     Indication: Scleritis
     Dosage: EYE DROPS, SOLUTION
     Route: 047
     Dates: start: 20210317
  7. SERRA PAMIES PHYSIOLOGICAL SERUM [Concomitant]
     Indication: Scleritis
     Dosage: 5.0 ML C/24 H
     Dates: start: 20190313
  8. PREDNISONE CINFA [Concomitant]
     Indication: Juvenile idiopathic arthritis
     Dosage: 5 MILLIGRAM, 1/DAY
     Route: 048
     Dates: start: 20151228
  9. FOSAVANCE [Concomitant]
     Active Substance: ALENDRONATE SODIUM\CHOLECALCIFEROL
     Indication: Juvenile idiopathic arthritis
     Dosage: 70 MILLIGRAM, 1/WEEK
     Route: 048
     Dates: start: 20191205
  10. ALPHAGAN P [Concomitant]
     Active Substance: BRIMONIDINE TARTRATE
     Indication: Scleritis
     Dosage: 1 DROP, EVERY 12 HRS
     Route: 047
     Dates: start: 20200107
  11. NATECAL D FLAS [Concomitant]
     Indication: Osteoporosis
     Dosage: UNK
     Route: 048
     Dates: start: 20111024
  12. QUINUX [Concomitant]
     Indication: Juvenile idiopathic arthritis
     Dosage: 10 MILLIGRAM, 1/WEEK
     Route: 030
     Dates: start: 20230328
  13. COLIROFTA ATROPINA [Concomitant]
     Indication: Scleritis
     Dosage: 1.0 GTS C/24 H
     Dates: start: 20200715
  14. OMEPRAZOLE [Concomitant]
     Active Substance: OMEPRAZOLE
     Indication: Dyspepsia
     Dosage: 40 MILLIGRAM, 1/DAY
     Route: 048
     Dates: start: 20120620
  15. MAXIDEX [Concomitant]
     Active Substance: DEXAMETHASONE
     Indication: Scleritis
     Dosage: 2 DROP, 1/DAYH
     Route: 047
     Dates: start: 20200417
  16. DEXKETOPROFEN TROMETAMOL [Concomitant]
     Active Substance: DEXKETOPROFEN TROMETAMOL
     Indication: Juvenile idiopathic arthritis
     Dosage: 25 MILLIGRAM, 3/DAY
     Route: 048
     Dates: start: 20190415
  17. FOLIC ACID [Concomitant]
     Active Substance: FOLIC ACID
     Indication: Juvenile idiopathic arthritis
     Dosage: 5 MILLIGRAM, 1/WEEK
     Route: 048
     Dates: start: 20230328

REACTIONS (2)
  - Chest pain [Recovered/Resolved]
  - Dyspnoea [Recovered/Resolved]

NARRATIVE: CASE EVENT DATE: 20230511
